FAERS Safety Report 5079424-8 (Version None)
Quarter: 2006Q3

REPORT INFORMATION
  Report Type: 
  Country: None (occurrence: None)
  Receive Date: 20060814
  Receipt Date: 20060714
  Transmission Date: 20061208
  Serious: Yes (Other)
  Sender: FDA-Public Use
  Company Number: JP-ROCHE-456280

PATIENT
  Age: 65 Year
  Sex: Female

DRUGS (1)
  1. PEGASYS [Suspect]
     Dosage: REPORTED AS ADMINISTERED IN A LOW DOSE.
     Route: 058

REACTIONS (1)
  - HAEMOLYTIC ANAEMIA [None]
